FAERS Safety Report 6108905-0 (Version None)
Quarter: 2009Q1

REPORT INFORMATION
  Report Type: 
  Country: None (occurrence: None)
  Receive Date: 20090306
  Receipt Date: 20090303
  Transmission Date: 20090719
  Serious: Yes (Hospitalization)
  Sender: FDA-Public Use
  Company Number: GXKR2009DE02527

PATIENT
  Age: 83 Year
  Sex: Female

DRUGS (7)
  1. ACETYLSALICYLIC ACID SRT [Suspect]
     Indication: PROPHYLAXIS
     Dosage: 100 MG, QD
  2. CALCILAC KT (CALCIUM CARBONATE, COLECALCIFEROL) [Suspect]
     Indication: OSTEOPOROSIS
     Dosage: 500 MG, BID, ORAL
     Route: 048
     Dates: end: 20080929
  3. NOVONORM (REPAGLINIDE) [Suspect]
     Indication: DIABETES MELLITUS
     Dosage: 0.5 MG, BID, ORAL
     Route: 048
     Dates: end: 20080929
  4. EXFORGE (AMLODIPINE BESILATE, VALSARTAN) [Suspect]
     Dosage: 5 MG, QD, ORAL
     Route: 048
  5. CARBAMAZEPINE [Suspect]
     Indication: DEPRESSION
     Dosage: 200 MG, QD
  6. TORSEMIDE [Suspect]
     Indication: HYPERTENSION
     Dosage: 10 MG, ORAL
     Route: 048
  7. METHIZOL (THIAMAZOLE) [Concomitant]

REACTIONS (3)
  - BLOOD CALCIUM INCREASED [None]
  - DEHYDRATION [None]
  - DIARRHOEA [None]
